FAERS Safety Report 5854713-5 (Version None)
Quarter: 2008Q3

REPORT INFORMATION
  Report Type: 
  Country: None (occurrence: None)
  Receive Date: 20080822
  Receipt Date: 20080813
  Transmission Date: 20090109
  Serious: Yes (Other)
  Sender: FDA-Public Use
  Company Number: US-PFIZER INC-2008067913

PATIENT
  Sex: Male
  Weight: 89 kg

DRUGS (4)
  1. CELEBREX [Suspect]
     Indication: ARTHRITIS
  2. WARFARIN SODIUM [Concomitant]
  3. SIMVASTATIN [Concomitant]
  4. PAROXETINE HCL [Concomitant]

REACTIONS (2)
  - HEART RATE IRREGULAR [None]
  - HYPERTENSION [None]
